FAERS Safety Report 9423596 (Version 1)
Quarter: 2013Q3

REPORT INFORMATION
  Report Type: Report from Study
  Country: US (occurrence: US)
  Receive Date: 20130726
  Receipt Date: 20130726
  Transmission Date: 20140515
  Serious: Yes (Death, Hospitalization)
  Sender: FDA-Public Use
  Company Number: US-US-EMD SERONO, INC.-7226283

PATIENT
  Age: 74 Year
  Sex: Female

DRUGS (1)
  1. REBIF [Suspect]
     Indication: MULTIPLE SCLEROSIS
     Route: 058
     Dates: start: 20030616

REACTIONS (6)
  - Staphylococcal infection [Fatal]
  - Aphagia [Fatal]
  - Pneumonia [Recovered/Resolved]
  - Wound infection staphylococcal [Recovered/Resolved]
  - Urinary tract infection [Recovered/Resolved]
  - Immobile [Unknown]
